FAERS Safety Report 5480655-3 (Version None)
Quarter: 2007Q4

REPORT INFORMATION
  Report Type: 
  Country: None (occurrence: None)
  Receive Date: 20071009
  Receipt Date: 20071008
  Transmission Date: 20080405
  Serious: Yes (Hospitalization, Other)
  Sender: FDA-Public Use
  Company Number: US-JNJFOC-20070801119

PATIENT
  Age: 29 Year
  Sex: Male

DRUGS (1)
  1. INVEGA [Suspect]
     Indication: MENTAL RETARDATION SEVERITY UNSPECIFIED
     Route: 048

REACTIONS (2)
  - BRONCHOPNEUMONIA [None]
  - EXTRAPYRAMIDAL DISORDER [None]
